FAERS Safety Report 9065371 (Version 1)
Quarter: 2013Q1

REPORT INFORMATION
  Report Type: Spontaneous
  Country: CA (occurrence: CA)
  Receive Date: 20130130
  Receipt Date: 20130130
  Transmission Date: 20140127
  Serious: Yes (Other)
  Sender: FDA-Public Use
  Company Number: CHPA2013CA001678

PATIENT
  Age: 48 Year
  Sex: Female

DRUGS (1)
  1. BUCKLEY^S MIXTURE [Suspect]
     Indication: BRONCHITIS
     Dosage: UNK, UNK
     Route: 048

REACTIONS (3)
  - Bronchitis [Unknown]
  - Off label use [Unknown]
  - Self-medication [None]
